FAERS Safety Report 9258845 (Version 1)
Quarter: 2013Q2

REPORT INFORMATION
  Report Type: Report from Study
  Country: US (occurrence: US)
  Receive Date: 20130426
  Receipt Date: 20130426
  Transmission Date: 20140414
  Serious: Yes (Hospitalization, Other)
  Sender: FDA-Public Use
  Company Number: US-GLAXOSMITHKLINE-A1021175A

PATIENT
  Age: 67 Year
  Sex: Female
  Weight: 96.1 kg

DRUGS (3)
  1. LAPATINIB DITOSYLATE [Suspect]
     Indication: BREAST CANCER
     Dosage: 1000MG PER DAY
     Route: 048
     Dates: start: 20120203
  2. INVESTIGATIONAL STUDY DRUG [Suspect]
     Indication: BREAST CANCER
     Dosage: 6MGK CYCLIC
     Route: 042
     Dates: start: 20120203
  3. CAPECITABINE [Suspect]
     Indication: BREAST CANCER
     Dosage: 825MGM2 TWICE PER DAY
     Route: 048
     Dates: start: 20120203

REACTIONS (3)
  - Dehydration [Recovering/Resolving]
  - Blood creatinine increased [Recovering/Resolving]
  - Diarrhoea [Recovering/Resolving]
